FAERS Safety Report 23152660 (Version 1)
Quarter: 2023Q4

REPORT INFORMATION
  Report Type: Report from Study
  Country: US (occurrence: US)
  Receive Date: 20231107
  Receipt Date: 20231107
  Transmission Date: 20240109
  Serious: Yes (Life-Threatening, Hospitalization, Other)
  Sender: FDA-Public Use
  Company Number: US-002147023-NVSC2023US235352

PATIENT
  Sex: Male

DRUGS (1)
  1. ENTRESTO [Suspect]
     Active Substance: SACUBITRIL\VALSARTAN
     Indication: Product used for unknown indication
     Dosage: UNK
     Route: 065

REACTIONS (7)
  - Brain hypoxia [Unknown]
  - Near death experience [Unknown]
  - Gastroenteritis viral [Unknown]
  - Cardiac dysfunction [Unknown]
  - Cerebral disorder [Unknown]
  - Decreased immune responsiveness [Unknown]
  - Hypokinesia [Unknown]
